FAERS Safety Report 23908293 (Version 1)
Quarter: 2024Q2

REPORT INFORMATION
  Report Type: Spontaneous
  Country: US (occurrence: None)
  Receive Date: 20240524
  Receipt Date: 20240524
  Transmission Date: 20240715
  Serious: Yes (Other)
  Sender: FDA-Public Use
  Company Number: None

PATIENT
  Age: 38 Year
  Sex: Male
  Weight: 115.2 kg

DRUGS (7)
  1. WEGOVY [Suspect]
     Active Substance: SEMAGLUTIDE
     Indication: Weight decreased
     Dosage: 1 INJECTION WEEKLY SUBCUTANEOUS?
     Route: 058
     Dates: start: 20240505
  2. LIDOCAINE [Concomitant]
     Active Substance: LIDOCAINE
  3. BUPROPION [Concomitant]
     Active Substance: BUPROPION
  4. FAMOTID [Concomitant]
  5. DEVICE [Concomitant]
     Active Substance: DEVICE
  6. one-daily multi-vitamin [Concomitant]
  7. cane [Concomitant]

REACTIONS (1)
  - Diarrhoea haemorrhagic [None]

NARRATIVE: CASE EVENT DATE: 20240524
